FAERS Safety Report 21721314 (Version 7)
Quarter: 2024Q3

REPORT INFORMATION
  Report Type: Spontaneous
  Country: US (occurrence: US)
  Receive Date: 20221213
  Receipt Date: 20240911
  Transmission Date: 20241016
  Serious: Yes (Hospitalization)
  Sender: GLAXOSMITHKLINE
  Company Number: US-GLAXOSMITHKLINE-US2020TSO013870

PATIENT

DRUGS (6)
  1. ZEJULA [Suspect]
     Active Substance: NIRAPARIB
     Indication: Ovarian cancer
     Dosage: 200 MG, QD AT NIGHT WITHOUT FOOD
     Route: 048
     Dates: start: 20200111
  2. ZEJULA [Suspect]
     Active Substance: NIRAPARIB
     Dosage: 100 MG, QD
  3. ZEJULA [Suspect]
     Active Substance: NIRAPARIB
     Dosage: 100 MG, QD
     Route: 048
  4. ZEJULA [Suspect]
     Active Substance: NIRAPARIB
     Dosage: 100 MG, QD
     Route: 048
  5. ZEJULA [Suspect]
     Active Substance: NIRAPARIB
     Indication: Ovarian cancer
     Dosage: UNK
  6. OCREVUS [Suspect]
     Active Substance: OCRELIZUMAB
     Indication: Product used for unknown indication
     Dosage: UNK, EVERY SIX MONTHS

REACTIONS (36)
  - Platelet count decreased [Unknown]
  - Arterial thrombosis [Unknown]
  - Heat exhaustion [Unknown]
  - Pain [Unknown]
  - Back pain [Unknown]
  - Constipation [Not Recovered/Not Resolved]
  - Ankle fracture [Unknown]
  - Stomatitis [Unknown]
  - Tongue disorder [Unknown]
  - Fungal foot infection [Not Recovered/Not Resolved]
  - Tinea pedis [Not Recovered/Not Resolved]
  - Photosensitivity reaction [Not Recovered/Not Resolved]
  - Insomnia [Unknown]
  - Malaise [Unknown]
  - Vomiting [Recovering/Resolving]
  - Fall [Not Recovered/Not Resolved]
  - Wrist fracture [Recovering/Resolving]
  - Coronavirus infection [Recovering/Resolving]
  - Pulmonary mass [Unknown]
  - Arthralgia [Not Recovered/Not Resolved]
  - Musculoskeletal chest pain [Unknown]
  - Asthenia [Not Recovered/Not Resolved]
  - Balance disorder [Unknown]
  - Coronavirus test positive [Recovering/Resolving]
  - Nausea [Unknown]
  - Blood test abnormal [Recovered/Resolved]
  - Mobility decreased [Unknown]
  - Onychomycosis [Unknown]
  - Condition aggravated [Not Recovered/Not Resolved]
  - Mouth ulceration [Unknown]
  - Body temperature increased [Unknown]
  - Blood pressure decreased [Unknown]
  - Catheter management [Unknown]
  - Klebsiella infection [Not Recovered/Not Resolved]
  - Urinary tract infection [Not Recovered/Not Resolved]
  - Off label use [Unknown]

NARRATIVE: CASE EVENT DATE: 20220101
